FAERS Safety Report 9912945 (Version 1)
Quarter: 2014Q1

REPORT INFORMATION
  Report Type: Spontaneous
  Country: GB (occurrence: None)
  Receive Date: 20140212
  Receipt Date: 20140212
  Transmission Date: 20141002
  Serious: Yes (Other)
  Sender: FDA-Public Use
  Company Number: 2172647

PATIENT
  Age: 28 Year
  Sex: Female
  Weight: 80 kg

DRUGS (8)
  1. GENTAMICIN SULFATE [Suspect]
     Indication: ANTIBIOTIC PROPHYLAXIS
     Route: 042
  2. TEICOPLANIN [Suspect]
     Route: 042
  3. PROPOFOL [Concomitant]
  4. FENTANYL [Concomitant]
  5. LIDOCAINE [Concomitant]
  6. PARACETAMOL [Concomitant]
  7. MORPHINE [Concomitant]
  8. KETAMINE [Concomitant]

REACTIONS (5)
  - Obstructive airways disorder [None]
  - Hypotension [None]
  - Bronchospasm [None]
  - Rash erythematous [None]
  - Rash [None]
